FAERS Safety Report 7731165-1 (Version None)
Quarter: 2011Q3

REPORT INFORMATION
  Report Type: 
  Country: None (occurrence: None)
  Receive Date: 20110906
  Receipt Date: 20110906
  Transmission Date: 20111222
  Serious: Yes (Death, Life-Threatening, Hospitalization, Disabling, Congenital Anomaly, Other)
  Sender: FDA-Public Use
  Company Number: None

PATIENT
  Age: 52 Year
  Sex: Male
  Weight: 90.718 kg

DRUGS (1)
  1. CYMBALTA [Suspect]
     Indication: NEUROPATHY PERIPHERAL
     Dosage: 150MG
     Route: 048
     Dates: start: 20050901, end: 20110603

REACTIONS (10)
  - DIZZINESS [None]
  - BURNING SENSATION [None]
  - HYPERHIDROSIS [None]
  - FATIGUE [None]
  - PRURITUS GENERALISED [None]
  - TEMPERATURE INTOLERANCE [None]
  - IRRITABILITY [None]
  - MOOD SWINGS [None]
  - WITHDRAWAL SYNDROME [None]
  - UNEVALUABLE EVENT [None]
